FAERS Safety Report 5175259-6 (Version None)
Quarter: 2006Q4

REPORT INFORMATION
  Report Type: 
  Country: None (occurrence: None)
  Receive Date: 20061211
  Receipt Date: 20061211
  Transmission Date: 20070319
  Serious: Yes (Other)
  Sender: FDA-Public Use
  Company Number: None

PATIENT
  Sex: Female
  Weight: 63.5036 kg

DRUGS (1)
  1. RAPTIVA [Suspect]
     Indication: PSORIASIS
     Dosage: 125 MG Q WK SQ
     Route: 058
     Dates: start: 20040501, end: 20041001

REACTIONS (2)
  - POLYARTHRITIS [None]
  - PSORIATIC ARTHROPATHY [None]
